FAERS Safety Report 11077956 (Version 1)
Quarter: 2015Q2

REPORT INFORMATION
  Report Type: Spontaneous
  Country: US (occurrence: None)
  Receive Date: 20150429
  Receipt Date: 20150429
  Transmission Date: 20150821
  Serious: Yes (Disabling, Other)
  Sender: FDA-Public Use
  Company Number: None

PATIENT
  Age: 63 Year
  Sex: Female
  Weight: 104.33 kg

DRUGS (8)
  1. OMEPRAZOLE. [Concomitant]
     Active Substance: OMEPRAZOLE
  2. METFORMIN [Concomitant]
     Active Substance: METFORMIN HYDROCHLORIDE
  3. LOSARTAN [Concomitant]
     Active Substance: LOSARTAN
  4. AGGRENOX [Concomitant]
     Active Substance: ASPIRIN\DIPYRIDAMOLE
  5. ASPIRIN. [Concomitant]
     Active Substance: ASPIRIN
  6. POTASSIUM [Concomitant]
     Active Substance: POTASSIUM
  7. METOPROLO [Concomitant]
  8. ROBITUSSIN LINGERING COLD LONG-ACTING COUGH [Suspect]
     Active Substance: DEXTROMETHORPHAN HYDROBROMIDE
     Indication: COUGH
     Dosage: 30MG/10ML, 10ML, EVERY 6 TO 8 HOURS
     Route: 048
     Dates: start: 20150406, end: 20150407

REACTIONS (1)
  - Epistaxis [None]

NARRATIVE: CASE EVENT DATE: 20150407
